FAERS Safety Report 8564945-3 (Version None)
Quarter: 2012Q3

REPORT INFORMATION
  Report Type: 
  Country: None (occurrence: None)
  Receive Date: 20120803
  Receipt Date: 20120731
  Transmission Date: 20120928
  Serious: Yes (Death)
  Sender: FDA-Public Use
  Company Number: US-PFIZER INC-2012186851

PATIENT
  Age: 19 Year
  Sex: Female

DRUGS (3)
  1. CYCLOPHOSPHAMIDE [Suspect]
     Indication: MEDULLOBLASTOMA
     Dosage: 8 CONSOLIDATION CYCLES
  2. VINCRISTINE SULFATE [Suspect]
     Indication: MEDULLOBLASTOMA
     Dosage: WEEKLY, FOLLOWED BY 8 CONSOLIDATION CYCLES
  3. CISPLATIN [Suspect]
     Indication: MEDULLOBLASTOMA
     Dosage: 8 CONSOLIDATION CYCLES

REACTIONS (9)
  - DYSPNOEA [None]
  - PYREXIA [None]
  - PANCYTOPENIA [None]
  - NEOPLASM MALIGNANT [None]
  - CHEST PAIN [None]
  - SEPSIS [None]
  - MULTI-ORGAN FAILURE [None]
  - CHRONIC MYELOID LEUKAEMIA [None]
  - FATIGUE [None]
